FAERS Safety Report 9299032 (Version 2)
Quarter: 2013Q3

REPORT INFORMATION
  Report Type: Spontaneous
  Country: DK (occurrence: DE)
  Receive Date: 20130520
  Receipt Date: 20130812
  Transmission Date: 20140515
  Serious: Yes (Hospitalization)
  Sender: FDA-Public Use
  Company Number: DE-FRI-1000044378

PATIENT
  Age: 34 Year
  Sex: Female

DRUGS (3)
  1. CITALOPRAM [Suspect]
     Dosage: 20 MG
     Route: 048
     Dates: start: 2010
  2. ASS [Concomitant]
  3. L-THYROXIN [Concomitant]

REACTIONS (5)
  - Pregnancy [Recovered/Resolved]
  - Cervical incompetence [Recovered/Resolved]
  - Premature labour [Recovered/Resolved]
  - Amniotic cavity disorder [Recovered/Resolved]
  - Caesarean section [Recovered/Resolved]
